FAERS Safety Report 24743456 (Version 2)
Quarter: 2025Q1

REPORT INFORMATION
  Report Type: Spontaneous
  Country: US (occurrence: US)
  Receive Date: 20241217
  Receipt Date: 20250218
  Transmission Date: 20250408
  Serious: Yes (Other)
  Sender: AUROBINDO
  Company Number: US-AUROBINDO-AUR-APL-2024-060813

PATIENT
  Age: 48 Year
  Sex: Male

DRUGS (4)
  1. FLUOROURACIL [Suspect]
     Active Substance: FLUOROURACIL
     Indication: Adrenocortical carcinoma
     Route: 065
  2. MITOTANE [Suspect]
     Active Substance: MITOTANE
     Indication: Adrenocortical carcinoma
     Route: 065
  3. STREPTOZOCIN [Suspect]
     Active Substance: STREPTOZOCIN
     Indication: Adrenocortical carcinoma
     Route: 065
  4. BEVACIZUMAB [Suspect]
     Active Substance: BEVACIZUMAB
     Indication: Adrenocortical carcinoma
     Route: 065

REACTIONS (4)
  - Drug ineffective [Unknown]
  - Vomiting [Unknown]
  - Flank pain [Recovering/Resolving]
  - Nausea [Recovered/Resolved]
